FAERS Safety Report 6526685-1 (Version None)
Quarter: 2010Q1

REPORT INFORMATION
  Report Type: 
  Country: None (occurrence: None)
  Receive Date: 20100105
  Receipt Date: 20091223
  Transmission Date: 20100710
  Serious: Yes (Hospitalization)
  Sender: FDA-Public Use
  Company Number: TW-AMGEN-US375576

PATIENT
  Sex: Female
  Weight: 42.1 kg

DRUGS (9)
  1. ENBREL [Suspect]
     Indication: RHEUMATOID ARTHRITIS
     Route: 058
     Dates: start: 20090302, end: 20091112
  2. FERROUS GLUCONATE [Concomitant]
     Indication: ANAEMIA
     Dosage: 8 - TID
     Route: 048
     Dates: start: 20090427
  3. CELECOXIB [Concomitant]
     Indication: RHEUMATOID ARTHRITIS
     Route: 048
     Dates: start: 20080429
  4. FUROSEMIDE [Concomitant]
     Indication: RHEUMATOID ARTHRITIS
     Route: 048
     Dates: start: 20091219
  5. HERBAL PREPARATION [Concomitant]
     Dosage: UNKNOWN
     Route: 061
  6. SENOKOT [Concomitant]
     Route: 048
     Dates: start: 20091219
  7. MAGNESIUM OXIDE [Concomitant]
     Dosage: HS
     Route: 048
     Dates: start: 20091219
  8. PREDNISOLONE [Concomitant]
     Indication: SYSTEMIC LUPUS ERYTHEMATOSUS
     Route: 048
     Dates: start: 20080401
  9. FOLIC ACID [Concomitant]
     Indication: PROPHYLAXIS
     Route: 048
     Dates: start: 20080722

REACTIONS (3)
  - AUTOIMMUNE DISORDER [None]
  - CELLULITIS [None]
  - PULMONARY HYPERTENSION [None]
